FAERS Safety Report 7456247-3 (Version None)
Quarter: 2011Q2

REPORT INFORMATION
  Report Type: 
  Country: None (occurrence: None)
  Receive Date: 20110503
  Receipt Date: 20110419
  Transmission Date: 20111010
  Serious: Yes (Hospitalization, Other)
  Sender: FDA-Public Use
  Company Number: US-WATSON-2011-05947

PATIENT
  Age: 17 Year
  Sex: Female

DRUGS (2)
  1. BUPROPION HCL [Suspect]
     Indication: OVERDOSE
     Dosage: 7.95 G, SINGLE
     Route: 048
  2. LAMOTRIGINE [Suspect]
     Indication: OVERDOSE
     Dosage: 4 G, SINGLE

REACTIONS (3)
  - CARDIOVASCULAR DISORDER [None]
  - OVERDOSE [None]
  - CONVULSION [None]
